FAERS Safety Report 4610243-X (Version None)
Quarter: 2005Q1

REPORT INFORMATION
  Report Type: 
  Country: None (occurrence: None)
  Receive Date: 20050314
  Receipt Date: 20040630
  Transmission Date: 20050727
  Serious: Yes (Death)
  Sender: FDA-Public Use
  Company Number: 8337

PATIENT
  Age: 59 Year
  Sex: Male

DRUGS (2)
  1. ATRACURIUM BESYLATE [Suspect]
     Dosage: INJ
  2. ETOMIDATE [Suspect]
     Dosage: INJ

REACTIONS (3)
  - DRUG TOXICITY [None]
  - OVERDOSE [None]
  - VICTIM OF HOMICIDE [None]
